FAERS Safety Report 25569007 (Version 1)
Quarter: 2025Q3

REPORT INFORMATION
  Report Type: Spontaneous
  Country: US (occurrence: US)
  Receive Date: 20250716
  Receipt Date: 20250716
  Transmission Date: 20251021
  Serious: Yes (Other)
  Sender: NOVO NORDISK
  Company Number: US-NOVOPROD-1479281

PATIENT
  Age: 76 Year
  Sex: Male

DRUGS (1)
  1. VICTOZA [Suspect]
     Active Substance: LIRAGLUTIDE
     Indication: Product used for unknown indication

REACTIONS (2)
  - Thermal burn [Unknown]
  - Burn infection [Unknown]

NARRATIVE: CASE EVENT DATE: 20210601
